FAERS Safety Report 6516847-1 (Version None)
Quarter: 2009Q4

REPORT INFORMATION
  Report Type: 
  Country: None (occurrence: None)
  Receive Date: 20091223
  Receipt Date: 20091217
  Transmission Date: 20100525
  Serious: Yes (Death, Life-Threatening)
  Sender: FDA-Public Use
  Company Number: PHHY2009JP56668

PATIENT
  Sex: Female
  Weight: 42 kg

DRUGS (20)
  1. SANDIMMUNE [Suspect]
     Indication: LUNG TRANSPLANT
     Dosage: 50 MG DAILY
     Route: 042
     Dates: start: 20071017, end: 20071018
  2. SANDIMMUNE [Suspect]
     Dosage: 60 MG DAILY
     Route: 042
     Dates: start: 20071019, end: 20071020
  3. SANDIMMUNE [Suspect]
     Dosage: 200 MG DAILY
     Route: 042
     Dates: start: 20071021, end: 20071021
  4. SANDIMMUNE [Suspect]
     Dosage: 108 MG DAILY
     Route: 042
     Dates: start: 20071022, end: 20071023
  5. SANDIMMUNE [Suspect]
     Dosage: 200 MG DAILY
     Route: 042
     Dates: start: 20071024, end: 20071026
  6. IMURAN [Suspect]
     Indication: LUNG TRANSPLANT
     Dosage: 100 MG DAILY
     Route: 042
     Dates: start: 20071017, end: 20071025
  7. SIMULECT [Concomitant]
     Indication: LUNG TRANSPLANT
     Dosage: 20 MG
     Route: 042
     Dates: start: 20071017
  8. SIMULECT [Concomitant]
     Dosage: 20 MG
     Route: 042
     Dates: start: 20071020
  9. SOL-MELCORT [Concomitant]
     Dosage: 125 MG
     Route: 042
     Dates: start: 20071016, end: 20071025
  10. MODACIN [Concomitant]
     Dosage: 3 G, UNK
     Route: 042
     Dates: start: 20071016, end: 20071025
  11. CLINDAMYCIN PHOSPHATE [Concomitant]
     Dosage: 1800 MG, UNK
     Route: 042
     Dates: start: 20071016, end: 20071025
  12. OMEPRAL [Concomitant]
     Dosage: 40 MG, UNK
     Route: 042
     Dates: start: 20071016, end: 20071025
  13. VENOGLOBULIN [Concomitant]
     Dosage: 5 G, UNK
     Route: 042
     Dates: start: 20071016, end: 20071019
  14. SOLDACTONE [Concomitant]
     Dosage: 200 MG, UNK
     Route: 042
     Dates: start: 20071017, end: 20071018
  15. LASIX [Concomitant]
     Dosage: 120 MG, UNK
     Route: 042
     Dates: start: 20071019, end: 20071022
  16. HANP [Concomitant]
     Dosage: 2.3 MG, UNK
     Route: 042
     Dates: start: 20071016, end: 20071026
  17. BOSMIN [Concomitant]
     Dosage: 4.3 MG, UNK
     Route: 042
     Dates: start: 20071022, end: 20071026
  18. ELASPOL [Concomitant]
     Dosage: UNK
     Route: 042
     Dates: start: 20071016, end: 20071026
  19. MILRILA [Concomitant]
     Dosage: 28.8 MG, UNK
     Route: 042
     Dates: start: 20071016, end: 20071026
  20. FENTANEST [Concomitant]
     Dosage: 1.8 MG, UNK
     Route: 042
     Dates: start: 20071023, end: 20071026

REACTIONS (4)
  - CARDIOVASCULAR INSUFFICIENCY [None]
  - GRAFT DYSFUNCTION [None]
  - PULMONARY FUNCTION TEST ABNORMAL [None]
  - RENAL FAILURE [None]
